FAERS Safety Report 8850260 (Version 2)
Quarter: 2012Q4

REPORT INFORMATION
  Report Type: Report from Study
  Country: CA (occurrence: CA)
  Receive Date: 20121019
  Receipt Date: 20121025
  Transmission Date: 20130627
  Serious: Yes (Life-Threatening)
  Sender: FDA-Public Use
  Company Number: CA-ROCHE-1146985

PATIENT
  Sex: Male
  Weight: 111.68 kg

DRUGS (8)
  1. CAPECITABINE [Suspect]
     Indication: COLORECTAL CANCER METASTATIC
     Route: 048
     Dates: start: 201205, end: 20120614
  2. INSULIN [Concomitant]
  3. RAMIPRIL [Concomitant]
  4. TECTA [Concomitant]
  5. ATORVASTATIN [Concomitant]
  6. EZETROL [Concomitant]
  7. LORAZEPAM [Concomitant]
  8. METFORMIN [Concomitant]

REACTIONS (1)
  - Arteriospasm coronary [Unknown]
